FAERS Safety Report 17672879 (Version 1)
Quarter: 2020Q2

REPORT INFORMATION
  Report Type: Spontaneous
  Country: US (occurrence: US)
  Receive Date: 20200415
  Receipt Date: 20200415
  Transmission Date: 20200713
  Serious: Yes (Life-Threatening, Hospitalization, Other)
  Sender: FDA-Public Use
  Company Number: US-ASTRAZENECA-2020SE20780

PATIENT
  Age: 106 Day
  Sex: Male
  Weight: 4.7 kg

DRUGS (3)
  1. SYNAGIS [Suspect]
     Active Substance: PALIVIZUMAB
     Indication: ANTIVIRAL PROPHYLAXIS
     Dosage: 15.0MG/KG UNKNOWN
     Route: 030
     Dates: start: 20200117
  2. SYNAGIS [Suspect]
     Active Substance: PALIVIZUMAB
     Indication: ANTIVIRAL PROPHYLAXIS
     Dosage: SYNAGIS 50 MG/0.5ML, 15 MG/KG MONTHLY UNKNOWN
     Route: 030
     Dates: start: 20200117, end: 20200119
  3. SYNAGIS [Suspect]
     Active Substance: PALIVIZUMAB
     Indication: ANTIVIRAL PROPHYLAXIS
     Dosage: 15.0MG/KG UNKNOWN
     Route: 030
     Dates: start: 20191223

REACTIONS (2)
  - Respiratory arrest [Recovered/Resolved]
  - Apnoea [Recovered/Resolved]

NARRATIVE: CASE EVENT DATE: 20200117
